FAERS Safety Report 19710025 (Version 3)
Quarter: 2021Q4

REPORT INFORMATION
  Report Type: Report from Study
  Country: US (occurrence: US)
  Receive Date: 20210816
  Receipt Date: 20211025
  Transmission Date: 20220303
  Serious: Yes (Death, Life-Threatening, Hospitalization, Disabling, Other)
  Sender: FDA-Public Use
  Company Number: US-GILEAD-2021-0520462

PATIENT
  Age: 70 Year
  Sex: Male

DRUGS (38)
  1. REMDESIVIR [Suspect]
     Active Substance: REMDESIVIR
     Indication: COVID-19
     Dosage: UNK, QD
     Route: 042
     Dates: start: 20210217, end: 20210219
  2. ABATACEPT [Suspect]
     Active Substance: ABATACEPT
     Indication: COVID-19
     Dosage: UNK, ONCE
     Route: 042
     Dates: start: 20210217, end: 20210217
  3. PLACEBO [Suspect]
     Active Substance: UNSPECIFIED INGREDIENT
     Indication: COVID-19
     Dosage: UNK, ONCE
     Route: 042
     Dates: start: 20210217, end: 20210217
  4. ASPIRIN [Concomitant]
     Active Substance: ASPIRIN
  5. APIXABAN [Concomitant]
     Active Substance: APIXABAN
  6. ATORVASTATIN CALCIUM [Concomitant]
     Active Substance: ATORVASTATIN CALCIUM
  7. BUMETANIDE [Concomitant]
     Active Substance: BUMETANIDE
  8. CARVEDILOL [Concomitant]
     Active Substance: CARVEDILOL
  9. CEFAZOLIN SODIUM [Concomitant]
     Active Substance: CEFAZOLIN SODIUM
  10. CEFTAROLINE FOSAMIL [Concomitant]
     Active Substance: CEFTAROLINE FOSAMIL
  11. CLOPIDOGREL [Concomitant]
     Active Substance: CLOPIDOGREL BISULFATE
  12. DEXAMETHASONE [Concomitant]
     Active Substance: DEXAMETHASONE
  13. ENOXAPARIN [Concomitant]
     Active Substance: ENOXAPARIN
  14. FENTANYL CITRATE [Concomitant]
     Active Substance: FENTANYL CITRATE
  15. FUROSEMIDE [Concomitant]
     Active Substance: FUROSEMIDE
  16. GABAPENTIN [Concomitant]
     Active Substance: GABAPENTIN
  17. NITROGLYCERIN [Concomitant]
     Active Substance: NITROGLYCERIN
  18. GUAIFENESIN [Concomitant]
     Active Substance: GUAIFENESIN
  19. HEPARIN SODIUM [Concomitant]
     Active Substance: HEPARIN SODIUM
  20. INSULIN GLARGINE [Concomitant]
     Active Substance: INSULIN GLARGINE
  21. INSULIN LISPRO [Concomitant]
     Active Substance: INSULIN LISPRO
  22. ALBUTEROL SULFATE\IPRATROPIUM BROMIDE [Concomitant]
     Active Substance: ALBUTEROL SULFATE\IPRATROPIUM BROMIDE
  23. LACTOBACILLUS ACIDOPHILUS [Concomitant]
     Active Substance: LACTOBACILLUS ACIDOPHILUS
  24. LEVOFLOXACIN [Concomitant]
     Active Substance: LEVOFLOXACIN
  25. LORAZEPAM [Concomitant]
     Active Substance: LORAZEPAM
  26. POLYETHYLENE GLYCOL 3350 [Concomitant]
     Active Substance: POLYETHYLENE GLYCOL 3350
  27. MIDAZOLAM HYDROCHLORIDE [Concomitant]
     Active Substance: MIDAZOLAM HYDROCHLORIDE
  28. MORPHINE SULFATE [Concomitant]
     Active Substance: MORPHINE SULFATE
  29. NALOXONE [Concomitant]
     Active Substance: NALOXONE
  30. NOREPINEPHRINE [Concomitant]
     Active Substance: NOREPINEPHRINE
  31. PANTOPRAZOLE SODIUM [Concomitant]
     Active Substance: PANTOPRAZOLE SODIUM
  32. ACETAMINOPHEN [Concomitant]
     Active Substance: ACETAMINOPHEN
  33. PROPOFOL [Concomitant]
     Active Substance: PROPOFOL
  34. ALBUTEROL [Concomitant]
     Active Substance: ALBUTEROL
  35. TAMSULOSIN [Concomitant]
     Active Substance: TAMSULOSIN
  36. TRAMADOL HCL [Concomitant]
     Active Substance: TRAMADOL HYDROCHLORIDE
  37. NOREPINEPHRINE BITARTRATE [Concomitant]
     Active Substance: NOREPINEPHRINE BITARTRATE
  38. TAMSULOSIN HYDROCHLORIDE [Concomitant]
     Active Substance: TAMSULOSIN HYDROCHLORIDE

REACTIONS (3)
  - Staphylococcal sepsis [Not Recovered/Not Resolved]
  - Respiratory failure [Fatal]
  - Acute kidney injury [Not Recovered/Not Resolved]

NARRATIVE: CASE EVENT DATE: 20210225
